FAERS Safety Report 9368850 (Version 3)
Quarter: 2013Q4

REPORT INFORMATION
  Report Type: Spontaneous
  Country: US (occurrence: US)
  Receive Date: 20130626
  Receipt Date: 20131105
  Transmission Date: 20140711
  Serious: Yes (Other)
  Sender: FDA-Public Use
  Company Number: US-009507513-1306USA010670

PATIENT
  Age: 65 Year
  Sex: Female

DRUGS (2)
  1. TEMODAR [Suspect]
     Indication: METASTATIC MALIGNANT MELANOMA
     Dosage: 350 MG, UNK, FORMULATION: VIAL
     Dates: start: 2013
  2. GABAPENTIN [Concomitant]
     Indication: SECONDARY PROGRESSIVE MULTIPLE SCLEROSIS
     Dosage: 3000 MILLIGRAMS PER DAY

REACTIONS (3)
  - Cerebrovascular operation [Unknown]
  - Central nervous system lesion [Unknown]
  - Gait disturbance [Unknown]
